FAERS Safety Report 25697520 (Version 1)
Quarter: 2025Q3

REPORT INFORMATION
  Report Type: Spontaneous
  Country: US (occurrence: None)
  Receive Date: 20250818
  Receipt Date: 20250818
  Transmission Date: 20251020
  Serious: No
  Sender: ENCUBE ETHICALS PVT. LTD.
  Company Number: US-Encube-002137

PATIENT
  Sex: Female

DRUGS (2)
  1. CLOBETASOL PROPIONATE [Suspect]
     Active Substance: CLOBETASOL PROPIONATE
     Indication: Pruritus
  2. CLOBETASOL PROPIONATE [Suspect]
     Active Substance: CLOBETASOL PROPIONATE
     Indication: Erythema

REACTIONS (3)
  - Urticaria [Unknown]
  - Contraindicated product administered [Unknown]
  - Allergic reaction to excipient [Unknown]
